FAERS Safety Report 4494427-X (Version None)
Quarter: 2004Q4

REPORT INFORMATION
  Report Type: 
  Country: None (occurrence: None)
  Receive Date: 20041102
  Receipt Date: 20040914
  Transmission Date: 20050328
  Serious: Yes (Other)
  Sender: FDA-Public Use
  Company Number: 8879

PATIENT
  Age: 24 Year
  Sex: Male

DRUGS (3)
  1. LANTAREL [Suspect]
     Dosage: 7.5 MG ONCE IM
     Route: 030
     Dates: start: 20040701, end: 20040701
  2. BEXTRA [Suspect]
     Dosage: 40 MG BID PO
     Route: 048
     Dates: start: 20030717
  3. TRAMADOL [Concomitant]

REACTIONS (4)
  - DRUG INTERACTION [None]
  - LEUKOPENIA [None]
  - PYREXIA [None]
  - THROMBOCYTOPENIA [None]
